FAERS Safety Report 8055771-2 (Version None)
Quarter: 2011Q4

REPORT INFORMATION
  Report Type: 
  Country: None (occurrence: None)
  Receive Date: 20111219
  Receipt Date: 20111021
  Transmission Date: 20120403
  Serious: Yes (Life-Threatening, Hospitalization, Disabling)
  Sender: FDA-Public Use
  Company Number: 2011SP050152

PATIENT
  Age: 36 Year
  Sex: Male

DRUGS (3)
  1. AMPHOTERICIN B [Suspect]
     Indication: LUNG INFECTION
     Dates: start: 20111013
  2. NOXAFIL [Suspect]
     Indication: LUNG INFECTION
     Dosage: 200 MG;Q6H
     Dates: start: 20111013
  3. NOXAFIL [Suspect]
     Indication: PNEUMONIA
     Dosage: 200 MG;Q6H
     Dates: start: 20111013

REACTIONS (1)
  - DRUG INEFFECTIVE [None]
